FAERS Safety Report 6531002-7 (Version None)
Quarter: 2010Q1

REPORT INFORMATION
  Report Type: 
  Country: None (occurrence: None)
  Receive Date: 20100108
  Receipt Date: 20090825
  Transmission Date: 20100710
  Serious: No
  Sender: FDA-Public Use
  Company Number: A0804060A

PATIENT
  Age: 66 Year
  Sex: Male

DRUGS (12)
  1. LOVAZA [Suspect]
     Indication: BLOOD CHOLESTEROL INCREASED
     Dosage: 2CAP PER DAY
     Route: 048
     Dates: start: 20080201
  2. COUMADIN [Concomitant]
  3. LANOXIN [Concomitant]
  4. FOLIC ACID [Concomitant]
  5. CENTRUM SILVER [Concomitant]
  6. MAGNESIUM [Concomitant]
  7. CO-Q10 [Concomitant]
  8. LIPITOR [Concomitant]
  9. NEXIUM [Concomitant]
  10. PROVENTIL [Concomitant]
  11. PROPRANOLOL [Concomitant]
  12. FUROSEMIDE [Concomitant]

REACTIONS (1)
  - URTICARIA [None]
